FAERS Safety Report 7811365-2 (Version None)
Quarter: 2011Q4

REPORT INFORMATION
  Report Type: 
  Country: None (occurrence: None)
  Receive Date: 20111013
  Receipt Date: 20111007
  Transmission Date: 20120403
  Serious: Yes (Other)
  Sender: FDA-Public Use
  Company Number: CA-PFIZER INC-2011121172

PATIENT
  Age: 70 Year
  Sex: Female

DRUGS (5)
  1. VITAMIN B-12 [Concomitant]
     Dosage: UNK
  2. VITAMIN B15 [Concomitant]
     Dosage: UNK
  3. VITAMIN D [Concomitant]
     Dosage: UNK
  4. XALATAN [Suspect]
     Indication: GLAUCOMA
     Dosage: 1 GTT IN EACH EYE, 1X/DAY
     Route: 047
     Dates: start: 20060101
  5. LIPITOR [Concomitant]
     Dosage: UNK

REACTIONS (1)
  - CATARACT [None]
